FAERS Safety Report 19002906 (Version 1)
Quarter: 2021Q1

REPORT INFORMATION
  Report Type: Spontaneous
  Country: CA (occurrence: CA)
  Receive Date: 20210312
  Receipt Date: 20210312
  Transmission Date: 20210420
  Serious: Yes (Other)
  Sender: FDA-Public Use
  Company Number: CA-PFIZER INC-2020510023

PATIENT
  Age: 56 Year
  Sex: Female
  Weight: 63.5 kg

DRUGS (6)
  1. SULFASALAZINE. [Suspect]
     Active Substance: SULFASALAZINE
     Dosage: 1 DF, UNK (DOSAGE UNKNOWN)
     Route: 065
     Dates: start: 202005
  2. METHOTREXATE SODIUM. [Suspect]
     Active Substance: METHOTREXATE SODIUM
     Indication: RHEUMATOID ARTHRITIS
     Dosage: 1 DF, WEEKLY (EXACT DOSE NOT AVAILABLE)
     Route: 065
     Dates: start: 20191201
  3. CRESTOR [Concomitant]
     Active Substance: ROSUVASTATIN CALCIUM
     Dosage: 40 MG, UNK
     Route: 065
  4. BISOPROLOL [Concomitant]
     Active Substance: BISOPROLOL
     Dosage: 1 DF, UNK (DOSAGE INFORMATION NOT AVAILABLE)
     Route: 065
  5. SULFASALAZINE. [Suspect]
     Active Substance: SULFASALAZINE
     Indication: RHEUMATOID ARTHRITIS
     Dosage: UNK
     Route: 065
     Dates: start: 20200501
  6. ASA [Concomitant]
     Active Substance: ASPIRIN
     Dosage: 1 DF, UNK (DOSAGE INFORMATION NOT AVAILABLE)
     Route: 065

REACTIONS (5)
  - Drug ineffective [Unknown]
  - Red blood cell sedimentation rate increased [Unknown]
  - Myocardial infarction [Recovered/Resolved]
  - Middle insomnia [Unknown]
  - Nodule [Unknown]

NARRATIVE: CASE EVENT DATE: 20200218
